FAERS Safety Report 9236475 (Version 1)
Quarter: 2013Q2

REPORT INFORMATION
  Report Type: Spontaneous
  Country: GB (occurrence: None)
  Receive Date: 20130415
  Receipt Date: 20130415
  Transmission Date: 20140414
  Serious: Yes (Death, Hospitalization, Other)
  Sender: FDA-Public Use
  Company Number: GER/GER/13/0028953

PATIENT
  Age: 83 Year
  Sex: Female
  Weight: 60 kg

DRUGS (6)
  1. IBUPROFEN (IBUPROFEN) [Suspect]
     Indication: PRODUCT USED FOR UNKNOWN INDICATION
  2. BONEFOS [Suspect]
     Indication: OSTEOPOROSIS
     Route: 048
     Dates: start: 20000701
  3. FOSAMAX [Suspect]
     Indication: PRODUCT USED FOR UNKNOWN INDICATION
  4. GRIPPEIMPFSTOFF [Suspect]
     Indication: PRODUCT USED FOR UNKNOWN INDICATION
  5. TETANUS VACCINE [Suspect]
     Indication: PRODUCT USED FOR UNKNOWN INDICATION
  6. FOSAVANCE [Suspect]

REACTIONS (19)
  - Fall [None]
  - Diarrhoea [None]
  - Confusional state [None]
  - Bronchitis [None]
  - Oesophagitis [None]
  - Fungal infection [None]
  - Dysphagia [None]
  - Jaw disorder [None]
  - Atrophy [None]
  - Chest pain [None]
  - Ear pain [None]
  - Renal cyst [None]
  - Mucous stools [None]
  - Osteonecrosis of jaw [None]
  - Oesophageal discomfort [None]
  - Upper limb fracture [None]
  - Treatment noncompliance [None]
  - Dyspnoea [None]
  - Drug prescribing error [None]
